FAERS Safety Report 7764315-1 (Version None)
Quarter: 2011Q3

REPORT INFORMATION
  Report Type: 
  Country: None (occurrence: None)
  Receive Date: 20110921
  Receipt Date: 20110915
  Transmission Date: 20111222
  Serious: Yes (Death, Hospitalization)
  Sender: FDA-Public Use
  Company Number: US-BRISTOL-MYERS SQUIBB COMPANY-16023871

PATIENT
  Age: 74 Year
  Sex: Male
  Weight: 69 kg

DRUGS (2)
  1. CETUXIMAB [Suspect]
     Indication: NON-SMALL CELL LUNG CANCER
     Route: 042
     Dates: start: 20051221, end: 20060117
  2. ALIMTA [Suspect]
     Indication: NON-SMALL CELL LUNG CANCER
     Route: 042
     Dates: start: 20051221, end: 20060110

REACTIONS (1)
  - CEREBRAL INFARCTION [None]
